FAERS Safety Report 5374651-4 (Version None)
Quarter: 2007Q2

REPORT INFORMATION
  Report Type: 
  Country: None (occurrence: None)
  Receive Date: 20070621
  Receipt Date: 20070226
  Transmission Date: 20071010
  Serious: Yes (Other)
  Sender: FDA-Public Use
  Company Number: 13692850

PATIENT
  Sex: Female

DRUGS (1)
  1. EMSAM [Suspect]
     Indication: BIPOLAR DISORDER
     Dosage: TD
     Route: 062

REACTIONS (1)
  - SUICIDAL IDEATION [None]
